FAERS Safety Report 14993288 (Version 1)
Quarter: 2018Q2

REPORT INFORMATION
  Report Type: Spontaneous
  Country: ID (occurrence: ID)
  Receive Date: 20180610
  Receipt Date: 20180610
  Transmission Date: 20180711
  Serious: Yes (Other)
  Sender: FDA-Public Use
  Company Number: ID-BAXTER-2018BAX016520

PATIENT
  Age: 58 Year
  Sex: Female

DRUGS (1)
  1. BICART 1150 [Suspect]
     Active Substance: SODIUM BICARBONATE
     Indication: PRODUCT USED FOR UNKNOWN INDICATION
     Route: 065

REACTIONS (1)
  - Administration site extravasation [Recovering/Resolving]
